FAERS Safety Report 24056062 (Version 2)
Quarter: 2024Q4

REPORT INFORMATION
  Report Type: Spontaneous
  Country: GB (occurrence: GB)
  Receive Date: 20240705
  Receipt Date: 20241015
  Transmission Date: 20250115
  Serious: Yes (Hospitalization)
  Sender: PFIZER
  Company Number: GB-ROCHE-3533682

PATIENT
  Age: 78 Year
  Sex: Male
  Weight: 84.8 kg

DRUGS (32)
  1. CARBOPLATIN [Suspect]
     Active Substance: CARBOPLATIN
     Indication: Small cell lung cancer extensive stage
     Dosage: 560 MG, EVERY 3 WEEKS
     Route: 042
     Dates: start: 20230309
  2. CARBOPLATIN [Suspect]
     Active Substance: CARBOPLATIN
     Dosage: 500 MG, (MOST RECENT DOSE PRIOR TO SAE ON 18MAY2023)
     Route: 042
  3. ETOPOSIDE [Suspect]
     Active Substance: ETOPOSIDE
     Indication: Small cell lung cancer extensive stage
     Dosage: 180 MG, EVERY 3 WEEKS (MOST RECENT DOSE PRIOR TO SAE ON 18MAY2023)
     Route: 042
     Dates: start: 20230309
  4. ATEZOLIZUMAB [Concomitant]
     Active Substance: ATEZOLIZUMAB
     Indication: Small cell lung cancer extensive stage
     Dosage: 1200 MG, EVERY 3 WEEKS (MOST RECENT DOSE OF PRIOR TO SAE ON 13MAR2024)
     Route: 042
     Dates: start: 20230309
  5. TRELEGY ELLIPTA [Concomitant]
     Active Substance: FLUTICASONE FUROATE\UMECLIDINIUM BROMIDE\VILANTEROL TRIFENATATE
     Indication: Chronic obstructive pulmonary disease
     Dosage: 1 DF (1 INHALATION)
     Route: 055
     Dates: start: 20160511
  6. TRELEGY ELLIPTA [Concomitant]
     Active Substance: FLUTICASONE FUROATE\UMECLIDINIUM BROMIDE\VILANTEROL TRIFENATATE
     Dosage: UNK
     Dates: start: 20240319
  7. ATORVASTATIN [Concomitant]
     Active Substance: ATORVASTATIN
     Dosage: UNK
     Dates: start: 20190125
  8. ALBUTEROL [Concomitant]
     Active Substance: ALBUTEROL
     Indication: Chronic obstructive pulmonary disease
     Dosage: UNK
     Dates: start: 20151130
  9. CHLORHEXIDINE [Concomitant]
     Active Substance: CHLORHEXIDINE
     Indication: Mucosal inflammation
     Dosage: UNK
     Dates: start: 20230331
  10. DOCUSATE [Concomitant]
     Active Substance: DOCUSATE
     Indication: Constipation
     Dosage: UNK
     Dates: start: 20230301
  11. LANSOPRAZOLE [Concomitant]
     Active Substance: LANSOPRAZOLE
     Indication: Dyspepsia
     Dosage: UNK
     Dates: start: 20230531
  12. LANSOPRAZOLE [Concomitant]
     Active Substance: LANSOPRAZOLE
     Dosage: UNK
     Dates: start: 20240319
  13. SENNA TABS [Concomitant]
     Active Substance: SENNOSIDES A AND B
     Indication: Constipation
     Dosage: UNK
     Dates: start: 20230328
  14. ACETAMINOPHEN [Concomitant]
     Active Substance: ACETAMINOPHEN
     Indication: Pain in extremity
     Dosage: INTERMITTENT ACHING LIMBS
     Dates: start: 20230426
  15. AVEENO [Concomitant]
     Active Substance: DIMETHICONE\HOMOSALATE\OCTINOXATE\OCTISALATE\TITANIUM DIOXIDE
     Indication: Rash
     Dosage: UNK
     Route: 061
     Dates: start: 20230801
  16. POLYETHYLENE GLYCOL 3350\POTASSIUM CHLORIDE\SODIUM BICARBONATE\SODIUM [Concomitant]
     Active Substance: POLYETHYLENE GLYCOL 3350\POTASSIUM CHLORIDE\SODIUM BICARBONATE\SODIUM CHLORIDE
     Indication: Constipation
     Dosage: UNK
     Dates: start: 20230518
  17. DOXYCYCLINE [Concomitant]
     Active Substance: DOXYCYCLINE
     Indication: Cough
     Dosage: UNK
     Dates: start: 20240220
  18. BECLOMETHASONE DIPROPIONATE [Concomitant]
     Active Substance: BECLOMETHASONE DIPROPIONATE
     Dosage: UNK
     Dates: start: 20240115
  19. PREDNISOLONE [Concomitant]
     Active Substance: PREDNISOLONE
     Indication: Lower respiratory tract infection
     Dosage: 300 MG, 1X/DAY
     Route: 048
     Dates: start: 20240229, end: 20240305
  20. PREDNISOLONE [Concomitant]
     Active Substance: PREDNISOLONE
     Indication: Chronic obstructive pulmonary disease
     Dosage: UNK
     Dates: start: 20240319, end: 20240321
  21. CLARITHROMYCIN [Concomitant]
     Active Substance: CLARITHROMYCIN
     Indication: Lower respiratory tract infection
     Dosage: UNK
     Dates: start: 20240229, end: 20240305
  22. ALBUTEROL [Concomitant]
     Active Substance: ALBUTEROL
     Indication: Chronic obstructive pulmonary disease
     Dosage: UNK
     Dates: start: 20240318
  23. ALBUTEROL [Concomitant]
     Active Substance: ALBUTEROL
     Indication: Productive cough
     Dosage: UNK
     Dates: start: 20240522
  24. ALBUTEROL [Concomitant]
     Active Substance: ALBUTEROL
     Indication: Dyspnoea
  25. AMOROLFINE [Concomitant]
     Active Substance: AMOROLFINE
     Indication: Chronic obstructive pulmonary disease
     Dosage: UNK
     Dates: start: 20240319
  26. AMOROLFINE [Concomitant]
     Active Substance: AMOROLFINE
     Indication: Productive cough
  27. AMOROLFINE [Concomitant]
     Active Substance: AMOROLFINE
     Indication: Dyspnoea
  28. AMOXICILLIN [Concomitant]
     Active Substance: AMOXICILLIN
     Indication: Chronic obstructive pulmonary disease
     Dosage: 500 MG
     Dates: start: 20240319, end: 20240321
  29. AMOXICILLIN [Concomitant]
     Active Substance: AMOXICILLIN
     Indication: Productive cough
  30. AMOXICILLIN [Concomitant]
     Active Substance: AMOXICILLIN
     Indication: Dyspnoea
  31. LORATADINE [Concomitant]
     Active Substance: LORATADINE
     Indication: Seasonal allergy
     Dosage: UNK
     Dates: start: 20240319
  32. STERIMAR [SEA WATER] [Concomitant]
     Dosage: UNK
     Dates: start: 20240115

REACTIONS (1)
  - Chest pain [Recovering/Resolving]

NARRATIVE: CASE EVENT DATE: 20240325
